FAERS Safety Report 5363838-2 (Version None)
Quarter: 2007Q2

REPORT INFORMATION
  Report Type: 
  Country: None (occurrence: None)
  Receive Date: 20070530
  Receipt Date: 20070102
  Transmission Date: 20071010
  Serious: No
  Sender: FDA-Public Use
  Company Number: 2007PV027708

PATIENT
  Sex: Male

DRUGS (4)
  1. BYETTA [Suspect]
     Indication: DRUG USE FOR UNKNOWN INDICATION
     Dosage: SEE IMAGE
     Route: 058
     Dates: start: 20060801, end: 20061101
  2. BYETTA [Suspect]
     Indication: DRUG USE FOR UNKNOWN INDICATION
     Dosage: SEE IMAGE
     Route: 058
     Dates: start: 20061101
  3. GLUCOPHAGE [Concomitant]
  4. GLUCOTROL [Concomitant]

REACTIONS (2)
  - BLOOD GLUCOSE DECREASED [None]
  - COLD SWEAT [None]
